FAERS Safety Report 8391116-6 (Version None)
Quarter: 2012Q2

REPORT INFORMATION
  Report Type: 
  Country: None (occurrence: None)
  Receive Date: 20120529
  Receipt Date: 20120517
  Transmission Date: 20120825
  Serious: Yes (Hospitalization)
  Sender: FDA-Public Use
  Company Number: US-PFIZER INC-2012119582

PATIENT
  Sex: Male
  Weight: 123.9 kg

DRUGS (9)
  1. AMLODIPINE [Concomitant]
  2. GEMCITABINE [Suspect]
     Indication: METASTATIC RENAL CELL CARCINOMA
     Dosage: 1000 MG, WEEKLY W/REST
     Route: 042
     Dates: start: 20120430, end: 20120507
  3. LIPITOR [Concomitant]
  4. ACETYLSALICYLIC ACID [Concomitant]
  5. VITAMIN D [Concomitant]
  6. METOPROLOL [Concomitant]
  7. SUNITINIB MALATE [Suspect]
     Indication: METASTATIC RENAL CELL CARCINOMA
     Dosage: 37.5 MG, 1X/DAY
     Route: 048
     Dates: start: 20120430, end: 20120513
  8. LORAZEPAM [Concomitant]
  9. DOCUSATE [Concomitant]

REACTIONS (1)
  - SYNCOPE [None]
